FAERS Safety Report 10580715 (Version 12)
Quarter: 2016Q1

REPORT INFORMATION
  Report Type: Report from Study
  Country: CA (occurrence: CA)
  Receive Date: 20141113
  Receipt Date: 20160331
  Transmission Date: 20160525
  Serious: Yes (Other)
  Sender: FDA-Public Use
  Company Number: CA-ROCHE-1118484

PATIENT
  Age: 66 Year
  Sex: Female
  Weight: 77.3 kg

DRUGS (13)
  1. VITAMIN B12 [Concomitant]
     Active Substance: CYANOCOBALAMIN
     Route: 065
  2. HALIBUT LIVER OIL [Concomitant]
     Active Substance: HALIBUT LIVER OIL
     Route: 048
  3. ACTEMRA [Suspect]
     Active Substance: TOCILIZUMAB
     Dosage: RECENT DOSE ON 31/OCT/2014
     Route: 042
  4. PREDNISONE. [Suspect]
     Active Substance: PREDNISONE
     Indication: PRODUCT USED FOR UNKNOWN INDICATION
     Route: 065
  5. WARFARIN [Concomitant]
     Active Substance: WARFARIN
  6. METHOTREXATE [Concomitant]
     Active Substance: METHOTREXATE
  7. ACTEMRA [Suspect]
     Active Substance: TOCILIZUMAB
     Indication: RHEUMATOID ARTHRITIS
     Route: 042
     Dates: start: 20120530, end: 20121031
  8. BISOPROLOL [Concomitant]
     Active Substance: BISOPROLOL
  9. FOLIC ACID. [Concomitant]
     Active Substance: FOLIC ACID
  10. DIGOXIN. [Concomitant]
     Active Substance: DIGOXIN
  11. RITUXAN [Suspect]
     Active Substance: RITUXIMAB
     Indication: RHEUMATOID ARTHRITIS
     Dosage: DAY 1, 15
     Route: 042
     Dates: start: 20150330
  12. ACTONEL [Concomitant]
     Active Substance: RISEDRONATE SODIUM
  13. OMEPRAZOLE. [Concomitant]
     Active Substance: OMEPRAZOLE
     Route: 065
     Dates: start: 20120625

REACTIONS (32)
  - Rheumatoid arthritis [Not Recovered/Not Resolved]
  - Infusion related reaction [Unknown]
  - Swelling face [Not Recovered/Not Resolved]
  - Pharyngeal ulceration [Not Recovered/Not Resolved]
  - Stomatitis [Recovering/Resolving]
  - Eyelid oedema [Not Recovered/Not Resolved]
  - Dyspnoea [Not Recovered/Not Resolved]
  - Weight increased [Not Recovered/Not Resolved]
  - Soft tissue injury [Unknown]
  - Erythema [Recovered/Resolved]
  - Pneumonia [Unknown]
  - Blood pressure fluctuation [Unknown]
  - Heart rate irregular [Unknown]
  - Infusion related reaction [Unknown]
  - Malaise [Not Recovered/Not Resolved]
  - Radius fracture [Recovering/Resolving]
  - Eye disorder [Unknown]
  - Diarrhoea [Unknown]
  - Malaise [Not Recovered/Not Resolved]
  - Anxiety [Recovered/Resolved]
  - Headache [Unknown]
  - Skin ulcer [Unknown]
  - Blood pressure increased [Not Recovered/Not Resolved]
  - Lower respiratory tract infection [Not Recovered/Not Resolved]
  - Weight decreased [Unknown]
  - Pain in extremity [Not Recovered/Not Resolved]
  - Nasopharyngitis [Not Recovered/Not Resolved]
  - Fibromyalgia [Not Recovered/Not Resolved]
  - Rotator cuff syndrome [Not Recovered/Not Resolved]
  - Haemoglobin decreased [Unknown]
  - Bronchitis [Unknown]
  - Fall [Unknown]

NARRATIVE: CASE EVENT DATE: 201206
